FAERS Safety Report 13665979 (Version 1)
Quarter: 2017Q2

REPORT INFORMATION
  Report Type: Spontaneous
  Country: US (occurrence: US)
  Receive Date: 20170619
  Receipt Date: 20170619
  Transmission Date: 20170830
  Serious: No
  Sender: FDA-Public Use
  Company Number: US-ELI_LILLY_AND_COMPANY-US201705006390

PATIENT
  Sex: Female

DRUGS (3)
  1. HUMALOG KWIKPEN [Suspect]
     Active Substance: INSULIN LISPRO
     Indication: TYPE 2 DIABETES MELLITUS
     Dosage: 19 UNK, UNK
     Route: 058
     Dates: start: 20170421
  2. LEVEMIR [Concomitant]
     Active Substance: INSULIN DETEMIR
     Indication: TYPE 2 DIABETES MELLITUS
     Dosage: 29 U, BID
     Route: 065
  3. HUMALOG KWIKPEN [Suspect]
     Active Substance: INSULIN LISPRO
     Dosage: 21 U, TID
     Route: 058
     Dates: start: 20170502

REACTIONS (2)
  - Blood glucose increased [Unknown]
  - Incorrect dose administered [Unknown]
